FAERS Safety Report 7345414-5 (Version None)
Quarter: 2011Q1

REPORT INFORMATION
  Report Type: 
  Country: None (occurrence: None)
  Receive Date: 20110310
  Receipt Date: 20110304
  Transmission Date: 20110831
  Serious: Yes (Hospitalization)
  Sender: FDA-Public Use
  Company Number: IT-TEVA-269986ISR

PATIENT
  Sex: Female

DRUGS (5)
  1. CARBOPLATIN [Suspect]
     Indication: BREAST CANCER
     Route: 042
     Dates: start: 20100922, end: 10110216
  2. DEXAMETHASONE HOSPIRA [Concomitant]
     Indication: PREMEDICATION
     Dates: start: 20081230, end: 20110216
  3. FERRIC SODIUM GLUCONATE COMPLEX [Concomitant]
     Indication: ANAEMIA
     Dates: start: 20110125, end: 20110216
  4. ONDANSETRON [Concomitant]
     Indication: PREMEDICATION
     Dates: start: 20090323, end: 20110216
  5. GEMCITABINE [Concomitant]
     Indication: PREMEDICATION
     Dates: start: 20100922, end: 20110216

REACTIONS (6)
  - RESPIRATION ABNORMAL [None]
  - VOMITING [None]
  - SYNCOPE [None]
  - LOSS OF CONSCIOUSNESS [None]
  - HYPOTENSION [None]
  - TRISMUS [None]
